FAERS Safety Report 14192622 (Version 1)
Quarter: 2017Q4

REPORT INFORMATION
  Report Type: Spontaneous
  Country: GB (occurrence: GB)
  Receive Date: 20171115
  Receipt Date: 20171115
  Transmission Date: 20180321
  Serious: Yes (Hospitalization)
  Sender: FDA-Public Use
  Company Number: GB-ALSI-201700409

PATIENT
  Age: 5 Decade
  Sex: Male

DRUGS (1)
  1. MEDICAL GASEOUS OXYGEN OXYGEN [Suspect]
     Active Substance: OXYGEN
     Indication: PRODUCT USED FOR UNKNOWN INDICATION
     Route: 055

REACTIONS (2)
  - Thermal burn [Unknown]
  - Intentional product misuse [Unknown]
